FAERS Safety Report 17444809 (Version 1)
Quarter: 2020Q1

REPORT INFORMATION
  Report Type: Spontaneous
  Country: US (occurrence: US)
  Receive Date: 20200221
  Receipt Date: 20200221
  Transmission Date: 20200409
  Serious: No
  Sender: FDA-Public Use
  Company Number: US-TEVA-2020-US-1188028

PATIENT

DRUGS (1)
  1. TESTOSTERONE TROPICAL GEL 10 MG [Suspect]
     Active Substance: TESTOSTERONE
     Dosage: APPLY 3 PUMPS PER THIGH
     Route: 061

REACTIONS (3)
  - Application site irritation [Unknown]
  - Application site erythema [Unknown]
  - Application site pruritus [Unknown]
